FAERS Safety Report 8059171-0 (Version None)
Quarter: 2012Q1

REPORT INFORMATION
  Report Type: 
  Country: None (occurrence: None)
  Receive Date: 20120120
  Receipt Date: 20120116
  Transmission Date: 20120608
  Serious: Yes (Other)
  Sender: FDA-Public Use
  Company Number: BR-JNJFOC-20120108280

PATIENT
  Sex: Female
  Weight: 88 kg

DRUGS (1)
  1. NICORETTE [Suspect]
     Indication: SMOKING CESSATION THERAPY
     Dosage: 15 PIECES A DAY, FOR FOUR YEARS
     Route: 048
     Dates: start: 20080101

REACTIONS (3)
  - INTENTIONAL DRUG MISUSE [None]
  - DEPENDENCE [None]
  - WRONG TECHNIQUE IN DRUG USAGE PROCESS [None]
